FAERS Safety Report 5284047-1 (Version None)
Quarter: 2007Q1

REPORT INFORMATION
  Report Type: 
  Country: None (occurrence: None)
  Receive Date: 20070327
  Receipt Date: 20070313
  Transmission Date: 20070707
  Serious: Yes (Hospitalization)
  Sender: FDA-Public Use
  Company Number: 8022734

PATIENT
  Sex: Female

DRUGS (5)
  1. KEPPRA [Suspect]
     Dosage: 500 MG 2/D
  2. KEPPRA [Suspect]
     Dosage: 500 MG 2/D
  3. KEPPRA [Suspect]
     Dosage: 2000 MG /D
  4. LAMOTRIGINE [Concomitant]
  5. LYRICA [Concomitant]

REACTIONS (2)
  - RASH [None]
  - STATUS EPILEPTICUS [None]
